FAERS Safety Report 10158454 (Version 2)
Quarter: 2014Q2

REPORT INFORMATION
  Report Type: Report from Study
  Country: AU (occurrence: AU)
  Receive Date: 20140507
  Receipt Date: 20140507
  Transmission Date: 20141212
  Serious: Yes (Other)
  Sender: FDA-Public Use
  Company Number: PHHY2014AU025837

PATIENT
  Age: 63 Year
  Sex: Female
  Weight: 66 kg

DRUGS (19)
  1. ACLASTA [Suspect]
     Indication: OSTEOPOROSIS
     Dosage: 5 MG, ANNUALLY
     Route: 042
     Dates: start: 20110301
  2. ACLASTA [Suspect]
     Dosage: 5 MG, ANNUALLY
     Route: 042
     Dates: start: 20120321
  3. ACLASTA [Suspect]
     Dosage: 5 MG, ANNUALLY
     Route: 042
     Dates: start: 20130312
  4. PARACETAMOL [Concomitant]
     Dosage: UNK UKN, UNK
  5. METHOTREXATE [Concomitant]
     Indication: RHEUMATOID ARTHRITIS
     Dosage: 2.5 DF, QW (VARIABLE DOSE)
     Dates: start: 20060828
  6. ARAVA [Concomitant]
     Indication: RHEUMATOID ARTHRITIS
     Dosage: 1 DF, UNK
  7. CALCIUM FOLINATE [Concomitant]
     Indication: RHEUMATOID ARTHRITIS
     Dosage: 2 DF, ON DAY OF METHOTREXATE DOSE AFTER 8 HOURS
     Dates: start: 20120307
  8. ENDEP [Concomitant]
     Indication: INSOMNIA
     Dosage: 1 DF, ONLY WHEN NEEDED
  9. ESOMEPRAZOLE [Concomitant]
     Indication: GASTROOESOPHAGEAL REFLUX DISEASE
     Dosage: 40 MG, DAILY
     Route: 048
     Dates: start: 20081117
  10. FOLIC ACID [Concomitant]
     Indication: RHEUMATOID ARTHRITIS
     Dosage: 5 DAYS A WEEK
  11. OXYBUTYNIN [Concomitant]
     Indication: HYPERTONIC BLADDER
     Dosage: 5 MG, UNK
     Route: 048
     Dates: start: 20090506
  12. PANAMAX [Concomitant]
     Indication: KNEE ARTHROPLASTY
     Dosage: 2 DF, TID
  13. PREDNISOLONE [Concomitant]
     Indication: RHEUMATOID ARTHRITIS
     Dosage: UNK UKN, UNK (VARIABLE)
     Route: 048
     Dates: start: 2008
  14. STEMETIL ^AVENTIS PHARMA^ [Concomitant]
     Dosage: 1 DF, TID ONLY WHEN NEEDED
  15. SYSTANE [Concomitant]
     Indication: SJOGREN^S SYNDROME
     Dosage: 1 DROP WHEN NEEDED
  16. VAGIFEM [Concomitant]
     Indication: VAGINAL INFECTION
     Dosage: 1 USE 5 DAYS PER MONTH, ONLY WHEN NEEDED
     Dates: start: 20120810
  17. VAGIFEM [Concomitant]
     Indication: ATROPHY
  18. IMMUNOSUPPRESSANTS [Concomitant]
  19. LEFLUNOMIDE [Concomitant]
     Indication: RHEUMATOID ARTHRITIS
     Dosage: 20 MG, DAILY
     Route: 048
     Dates: start: 20081001, end: 20110523

REACTIONS (10)
  - Haemoglobin abnormal [Not Recovered/Not Resolved]
  - Blood lactate dehydrogenase increased [Unknown]
  - Blood creatine phosphokinase increased [Unknown]
  - Glomerular filtration rate decreased [Unknown]
  - Red cell distribution width abnormal [Recovered/Resolved]
  - Neutrophil count abnormal [Recovered/Resolved]
  - Red cell distribution width increased [Unknown]
  - Neutrophil count decreased [Recovered/Resolved]
  - Haemoglobin decreased [Recovered/Resolved]
  - Arthralgia [Unknown]
